FAERS Safety Report 9764252 (Version 1)
Quarter: 2013Q4

REPORT INFORMATION
  Report Type: Spontaneous
  Country: US (occurrence: US)
  Receive Date: 20131216
  Receipt Date: 20131216
  Transmission Date: 20140711
  Serious: Yes (Hospitalization)
  Sender: FDA-Public Use
  Company Number: US-ROCHE-1321097

PATIENT
  Sex: Female

DRUGS (3)
  1. XELODA [Suspect]
     Indication: BREAST CANCER FEMALE
     Dosage: FOR 14 DAYS AND REPEAT EVERY 21 DAYS
     Route: 048
     Dates: start: 20130103
  2. CLARITIN [Concomitant]
  3. AROMASIN [Concomitant]
     Route: 065

REACTIONS (1)
  - Intestinal obstruction [Recovered/Resolved]
